FAERS Safety Report 5010000-9 (Version None)
Quarter: 2006Q2

REPORT INFORMATION
  Report Type: 
  Country: None (occurrence: None)
  Receive Date: 20060524
  Receipt Date: 20060516
  Transmission Date: 20061013
  Serious: Yes (Hospitalization)
  Sender: FDA-Public Use
  Company Number: FR-BRISTOL-MYERS SQUIBB COMPANY-13380126

PATIENT
  Age: 66 Year
  Sex: Male

DRUGS (11)
  1. ELISOR TABS 20 MG [Suspect]
     Route: 048
     Dates: end: 20060414
  2. CORDARONE [Suspect]
     Route: 048
     Dates: end: 20060414
  3. PROZAC [Suspect]
     Route: 048
     Dates: end: 20060414
  4. MOPRAL [Concomitant]
  5. CARDENSIEL [Concomitant]
  6. COVERSYL [Concomitant]
  7. LASILIX [Concomitant]
  8. LEXOMIL [Concomitant]
  9. STILNOX [Concomitant]
  10. PLAVIX [Concomitant]
  11. PREVISCAN [Concomitant]

REACTIONS (2)
  - DYSPNOEA [None]
  - INTERSTITIAL LUNG DISEASE [None]
